FAERS Safety Report 5098485-3 (Version None)
Quarter: 2006Q3

REPORT INFORMATION
  Report Type: 
  Country: None (occurrence: None)
  Receive Date: 20060906
  Receipt Date: 20060201
  Transmission Date: 20061208
  Serious: No
  Sender: FDA-Public Use
  Company Number: US-GLAXOSMITHKLINE-A0591913A

PATIENT
  Age: 53 Year
  Sex: Female

DRUGS (4)
  1. REQUIP [Suspect]
     Indication: RESTLESS LEGS SYNDROME
     Dosage: .5MG PER DAY
     Route: 048
     Dates: start: 20051201
  2. TRAZODONE HCL [Concomitant]
  3. CYMBALTA [Concomitant]
  4. ULTRAM [Concomitant]

REACTIONS (3)
  - ARTHRALGIA [None]
  - OEDEMA PERIPHERAL [None]
  - PALPITATIONS [None]
